FAERS Safety Report 6984982-X (Version None)
Quarter: 2010Q3

REPORT INFORMATION
  Report Type: 
  Country: None (occurrence: None)
  Receive Date: 20100915
  Receipt Date: 20100903
  Transmission Date: 20110219
  Serious: Yes (Other)
  Sender: FDA-Public Use
  Company Number: US-SANOFI-AVENTIS-2010SA054340

PATIENT
  Age: 59 Year
  Sex: Female
  Weight: 127 kg

DRUGS (6)
  1. LASIX [Suspect]
  2. AVANDAMET [Suspect]
     Indication: TYPE 2 DIABETES MELLITUS
     Dosage: 4/1000 MG (1) TAB PO DAILY
     Route: 048
     Dates: start: 20080401, end: 20090901
  3. LANOXIN [Suspect]
     Indication: ATRIAL FIBRILLATION
     Dates: start: 20100201
  4. CARDIZEM [Suspect]
  5. MAGNESIUM (SALT NOT SPECIFIED) [Concomitant]
  6. POTASSIUM CHLORIDE [Concomitant]

REACTIONS (9)
  - ATRIAL FIBRILLATION [None]
  - DECREASED APPETITE [None]
  - DIARRHOEA [None]
  - ELECTROLYTE IMBALANCE [None]
  - FAECES HARD [None]
  - GASTROINTESTINAL DISORDER [None]
  - NAUSEA [None]
  - WEIGHT DECREASED [None]
  - WEIGHT INCREASED [None]
